FAERS Safety Report 8071681-9 (Version None)
Quarter: 2012Q1

REPORT INFORMATION
  Report Type: 
  Country: None (occurrence: None)
  Receive Date: 20120125
  Receipt Date: 20120116
  Transmission Date: 20120608
  Serious: Yes (Other)
  Sender: FDA-Public Use
  Company Number: TR-ABBOTT-12P-161-0893352-00

PATIENT
  Age: 80 Year
  Sex: Female

DRUGS (2)
  1. TARKA [Suspect]
     Indication: HYPERTENSION
     Dosage: 180MG/2MG QD
     Route: 048
     Dates: end: 20120115
  2. DIOVAN HCT [Interacting]
     Indication: HYPERTENSION
     Route: 048
     Dates: end: 20120115

REACTIONS (2)
  - DRUG INTERACTION [None]
  - BRADYCARDIA [None]
